FAERS Safety Report 20998486 (Version 2)
Quarter: 2022Q2

REPORT INFORMATION
  Report Type: Report from Study
  Country: CN (occurrence: CN)
  Receive Date: 20220623
  Receipt Date: 20220630
  Transmission Date: 20220720
  Serious: Yes (Hospitalization)
  Sender: FDA-Public Use
  Company Number: CN-GLAXOSMITHKLINE-CN2022GSK094425

PATIENT

DRUGS (40)
  1. BELANTAMAB MAFODOTIN [Suspect]
     Active Substance: BELANTAMAB MAFODOTIN
     Indication: Plasma cell myeloma
     Dosage: 2.50 MG/KG DAY 1 OF EVERY 21 DAY CYCLE
     Route: 042
     Dates: start: 20220429
  2. SODIUM HYALURONATE EYE DROP [Concomitant]
     Indication: Dry eye
     Dosage: 0.1 ML, QID
     Route: 031
     Dates: start: 20220429
  3. PROMETHAZINE [Concomitant]
     Active Substance: PROMETHAZINE HYDROCHLORIDE
     Indication: Prophylaxis
     Dosage: 25 MG, SINGLE
     Route: 030
     Dates: start: 20220429, end: 20220429
  4. PROMETHAZINE [Concomitant]
     Active Substance: PROMETHAZINE HYDROCHLORIDE
     Dosage: 25 MG, SINGLE
     Route: 030
     Dates: start: 20220520, end: 20220520
  5. PROMETHAZINE [Concomitant]
     Active Substance: PROMETHAZINE HYDROCHLORIDE
     Dosage: 25 MG, SINGLE
     Route: 030
     Dates: start: 20220610, end: 20220610
  6. LORATADINE [Concomitant]
     Active Substance: LORATADINE
     Indication: Prophylaxis
     Dosage: 10 MG, SINGLE
     Route: 048
     Dates: start: 20220429, end: 20220429
  7. LORATADINE [Concomitant]
     Active Substance: LORATADINE
     Dosage: 10 MG, SINGLE
     Route: 048
     Dates: start: 20220520, end: 20220520
  8. LORATADINE [Concomitant]
     Active Substance: LORATADINE
     Dosage: 10 MG, SINGLE
     Route: 048
     Dates: start: 20220610, end: 20220610
  9. DEXAMETHASONE SODIUM PHOSPHATE [Concomitant]
     Active Substance: DEXAMETHASONE SODIUM PHOSPHATE
     Indication: Prophylaxis
     Dosage: 10 MG, SINGLE
     Route: 042
     Dates: start: 20220429, end: 20220429
  10. DEXAMETHASONE SODIUM PHOSPHATE [Concomitant]
     Active Substance: DEXAMETHASONE SODIUM PHOSPHATE
     Dosage: 10 MG, SINGLE
     Route: 042
     Dates: start: 20220520, end: 20220520
  11. DEXAMETHASONE SODIUM PHOSPHATE [Concomitant]
     Active Substance: DEXAMETHASONE SODIUM PHOSPHATE
     Dosage: 10 MG, SINGLE
     Route: 042
     Dates: start: 20220610, end: 20220610
  12. PALONOSETRON HYDROCHLORIDE [Concomitant]
     Active Substance: PALONOSETRON HYDROCHLORIDE
     Indication: Prophylaxis
     Dosage: 0.25 MG, SINGLE
     Route: 042
     Dates: start: 20220429, end: 20220429
  13. PALONOSETRON HYDROCHLORIDE [Concomitant]
     Active Substance: PALONOSETRON HYDROCHLORIDE
     Dosage: 0.25 MG, SINGLE
     Route: 042
     Dates: start: 20220520, end: 20220520
  14. PALONOSETRON HYDROCHLORIDE [Concomitant]
     Active Substance: PALONOSETRON HYDROCHLORIDE
     Dosage: 0.25 MG, SINGLE
     Route: 042
     Dates: start: 20220610, end: 20220610
  15. FUROSEMIDE [Concomitant]
     Active Substance: FUROSEMIDE
     Indication: Diuretic therapy
     Dosage: 20 MG, SINGLE
     Route: 042
     Dates: start: 20220429, end: 20220429
  16. FUROSEMIDE [Concomitant]
     Active Substance: FUROSEMIDE
     Dosage: 20 MG, SINGLE
     Route: 042
     Dates: start: 20220505, end: 20220505
  17. SODIUM BICARBONATE [Concomitant]
     Active Substance: SODIUM BICARBONATE
     Indication: Blood pH increased
     Dosage: 4 G, SINGLE
     Route: 042
     Dates: start: 20220429, end: 20220429
  18. DEXTROSE [Concomitant]
     Active Substance: DEXTROSE
     Indication: Fluid replacement
     Dosage: 1000 ML, SINGLE (5%)
     Route: 042
     Dates: start: 20220429, end: 20220429
  19. DEXTROSE [Concomitant]
     Active Substance: DEXTROSE
     Dosage: 500 ML, QD
     Route: 042
     Dates: start: 20220501, end: 20220509
  20. 0.9% SODIUM CHLORIDE SOLUTION INTRAVENOUS INFUSION [Concomitant]
     Indication: Fluid replacement
     Dosage: 500 ML, SINGLE
     Route: 042
     Dates: start: 20220429, end: 20220429
  21. 0.9% SODIUM CHLORIDE SOLUTION INTRAVENOUS INFUSION [Concomitant]
     Dosage: 500 ML, QD
     Route: 042
     Dates: start: 20220501, end: 20220509
  22. SODIUM IBANDRONATE INJECTION [Concomitant]
     Indication: Bone pain
     Dosage: 4 MG, SINGLE
     Route: 042
     Dates: start: 20220430, end: 20220430
  23. SODIUM IBANDRONATE INJECTION [Concomitant]
     Dosage: 4 MG, SINGLE
     Route: 042
     Dates: start: 20220610, end: 20220610
  24. TRAMADOL HYDROCHLORIDE SUSTAINED RELEASE TABLETS [Concomitant]
     Indication: Pain
     Dosage: 0.1 G, SINGLE
     Route: 048
     Dates: start: 20220430, end: 20220430
  25. POTASSIUM CHLORIDE [Concomitant]
     Active Substance: POTASSIUM CHLORIDE
     Indication: Mineral supplementation
     Dosage: 3 G, SINGLE
     Route: 048
     Dates: start: 20220501, end: 20220501
  26. POTASSIUM CHLORIDE [Concomitant]
     Active Substance: POTASSIUM CHLORIDE
     Dosage: 3 G, QD
     Route: 048
     Dates: start: 20220509, end: 20220510
  27. POTASSIUM CHLORIDE [Concomitant]
     Active Substance: POTASSIUM CHLORIDE
     Dosage: 1.5 G, SINGLE
     Route: 042
     Dates: start: 20220510, end: 20220510
  28. RECOMBINANT HUMAN GRANULOCYTE COLONY STIMULATING FACTOR INJECTION [Concomitant]
     Indication: White blood cell count increased
     Dosage: 200 UG, SINGLE
     Route: 058
     Dates: start: 20220502, end: 20220502
  29. RECOMBINANT HUMAN GRANULOCYTE COLONY STIMULATING FACTOR INJECTION [Concomitant]
     Dosage: 300 UG, SINGLE
     Route: 058
     Dates: start: 20220506, end: 20220506
  30. RECOMBINANT HUMAN GRANULOCYTE COLONY STIMULATING FACTOR INJECTION [Concomitant]
     Dosage: 150 UG, SINGLE
     Route: 058
     Dates: start: 20220520, end: 20220520
  31. RECOMBINANT HUMAN GRANULOCYTE COLONY STIMULATING FACTOR INJECTION [Concomitant]
     Dosage: 200 UG, SINGLE
     Route: 058
     Dates: start: 20220609, end: 20220609
  32. RECOMBINANT HUMAN GRANULOCYTE COLONY STIMULATING FACTOR INJECTION [Concomitant]
     Dosage: 200 UG, SINGLE
     Route: 058
     Dates: start: 20220620, end: 20220620
  33. RECOMBINANT HUMAN GRANULOCYTE COLONY STIMULATING FACTOR INJECTION [Concomitant]
     Dosage: 1.5 ML, SINGLE
     Route: 058
     Dates: start: 20220615, end: 20220615
  34. ENTECAVIR CAPSULES [Concomitant]
     Indication: Antiviral treatment
     Dosage: 0.5 MG, QD
     Route: 048
     Dates: start: 202203
  35. BICYCLOL TABLET [Concomitant]
     Dosage: 25 MG, QD
     Route: 048
     Dates: start: 20220502
  36. NIFEDIPINE [Concomitant]
     Active Substance: NIFEDIPINE
     Indication: Hypertension
     Dosage: 30 MG, SINGLE
     Route: 048
     Dates: start: 20220503, end: 20220503
  37. ETAMSYLATE INJECTION [Concomitant]
     Indication: Haemostasis
     Dosage: 2 G, QD
     Route: 042
     Dates: start: 20220506, end: 20220510
  38. RECOMBINANT HUMAN THROMBOPOIETIN INJECTION [Concomitant]
     Indication: Platelet count increased
     Dosage: 1500 U, QD
     Route: 058
     Dates: start: 20220507, end: 20220510
  39. RECOMBINANT HUMAN THROMBOPOIETIN INJECTION [Concomitant]
     Dosage: 1500 U, QD
     Route: 058
     Dates: start: 20220620, end: 20220624
  40. OMEPRAZOLE [Concomitant]
     Active Substance: OMEPRAZOLE
     Indication: Gastrointestinal disorder prophylaxis
     Dosage: 20 MG
     Route: 048
     Dates: start: 2022, end: 20220507

REACTIONS (1)
  - Upper respiratory tract infection [Recovered/Resolved]

NARRATIVE: CASE EVENT DATE: 20220615
